FAERS Safety Report 17072121 (Version 1)
Quarter: 2019Q4

REPORT INFORMATION
  Report Type: Spontaneous
  Country: US (occurrence: US)
  Receive Date: 20191125
  Receipt Date: 20191125
  Transmission Date: 20200122
  Serious: No
  Sender: FDA-Public Use
  Company Number: US-009507513-1911USA000252

PATIENT
  Age: 57 Year
  Sex: Female

DRUGS (5)
  1. SINGULAIR [Suspect]
     Active Substance: MONTELUKAST SODIUM
     Indication: IDIOPATHIC ANGIOEDEMA
     Dosage: 10MG DAILY
     Route: 048
  2. RANITIDINE. [Concomitant]
     Active Substance: RANITIDINE
     Indication: IDIOPATHIC ANGIOEDEMA
     Dosage: 150MG TWICE DAILY
  3. HYDROXYZINE [Concomitant]
     Active Substance: HYDROXYZINE HYDROCHLORIDE
     Indication: IDIOPATHIC ANGIOEDEMA
     Dosage: 25MG AT NIGHT
  4. CETIRIZINE HYDROCHLORIDE. [Concomitant]
     Active Substance: CETIRIZINE HYDROCHLORIDE
     Indication: IDIOPATHIC ANGIOEDEMA
     Dosage: 10MG TWICE DAILY
  5. ZILEUTON. [Concomitant]
     Active Substance: ZILEUTON
     Indication: IDIOPATHIC ANGIOEDEMA
     Dosage: 600MG TWICE DAILY

REACTIONS (1)
  - Product use in unapproved indication [Unknown]
